FAERS Safety Report 5826322-5 (Version None)
Quarter: 2008Q3

REPORT INFORMATION
  Report Type: 
  Country: None (occurrence: None)
  Receive Date: 20080729
  Receipt Date: 20080717
  Transmission Date: 20090109
  Serious: Yes (Other)
  Sender: FDA-Public Use
  Company Number: BR-PFIZER INC-2008060445

PATIENT
  Sex: Female
  Weight: 54 kg

DRUGS (3)
  1. DEPO-PROVERA SUSPENSION/INJ [Suspect]
     Indication: CONTRACEPTION
     Route: 030
     Dates: start: 20080408, end: 20080408
  2. SELOZOK [Concomitant]
  3. INDAPAMIDE [Concomitant]

REACTIONS (10)
  - ABDOMINAL DISTENSION [None]
  - ABDOMINAL PAIN [None]
  - AMENORRHOEA [None]
  - BLOOD PRESSURE DECREASED [None]
  - DIZZINESS [None]
  - GENITOURINARY TRACT INFECTION [None]
  - NAUSEA [None]
  - PHARYNGITIS [None]
  - SWELLING FACE [None]
  - WEIGHT INCREASED [None]
